FAERS Safety Report 5705955-0 (Version None)
Quarter: 2008Q2

REPORT INFORMATION
  Report Type: 
  Country: None (occurrence: None)
  Receive Date: 20080411
  Receipt Date: 20080326
  Transmission Date: 20081010
  Serious: Yes (Other)
  Sender: FDA-Public Use
  Company Number: S08-NOR-01143-01

PATIENT
  Age: 27 Year
  Sex: Female

DRUGS (3)
  1. ESCITALOPRAM [Suspect]
     Indication: DEPRESSION
     Dosage: 10 MG QD PO
     Route: 048
     Dates: start: 20050103, end: 20050124
  2. TRINORDIOL (EUGYNON) [Suspect]
     Indication: CONTRACEPTION
  3. IMOVANE (ZOPICLONE) [Concomitant]

REACTIONS (11)
  - AFFECT LABILITY [None]
  - ANXIETY [None]
  - DEPRESSION [None]
  - DRUG INTOLERANCE [None]
  - HALLUCINATION [None]
  - MALAISE [None]
  - POISONING [None]
  - SCHIZOID PERSONALITY DISORDER [None]
  - SOCIAL PHOBIA [None]
  - VERTIGO [None]
  - VOMITING [None]
